FAERS Safety Report 7144986-3 (Version None)
Quarter: 2010Q4

REPORT INFORMATION
  Report Type: 
  Country: None (occurrence: None)
  Receive Date: 20101208
  Receipt Date: 20101201
  Transmission Date: 20110411
  Serious: Yes (Death, Life-Threatening, Hospitalization)
  Sender: FDA-Public Use
  Company Number: JP-BRISTOL-MYERS SQUIBB COMPANY-14821268

PATIENT
  Age: 55 Year
  Sex: Female
  Weight: 44 kg

DRUGS (16)
  1. SPRYCEL [Suspect]
     Indication: ACUTE LYMPHOCYTIC LEUKAEMIA
     Dosage: INTERRUPT ON 21APR09 RESTART ON 20MAY AT 50MG 2/1D 100 MG 1/1 D FROM 30JUN
     Route: 048
     Dates: start: 20090327
  2. MAXIPIME [Concomitant]
     Route: 042
     Dates: start: 20090407, end: 20090901
  3. MICAFUNGIN SODIUM [Concomitant]
     Dosage: INJ
     Route: 042
     Dates: start: 20090410, end: 20090913
  4. AMIKACIN [Concomitant]
     Route: 042
     Dates: start: 20090408
  5. VITAMIN B1 TAB [Concomitant]
     Route: 042
     Dates: start: 20090614, end: 20090621
  6. GLUCOSE [Concomitant]
     Route: 042
     Dates: start: 20090614, end: 20090621
  7. AMINO ACID + ELECTROLYTES [Concomitant]
     Route: 042
     Dates: start: 20090614, end: 20090621
  8. PLATELETS [Concomitant]
     Dates: start: 20090421, end: 20090421
  9. GANCICLOVIR [Concomitant]
     Dosage: FORMULATION: INJ
     Route: 042
     Dates: start: 20090827, end: 20090901
  10. FOSCARNET SODIUM [Concomitant]
     Dosage: FORMULATION INJ,  ALSO 180MG/D FROM02SEP-04OCT09
     Route: 042
     Dates: start: 20090901, end: 20090902
  11. OSELTAMIVIR PHOSPHATE [Concomitant]
     Route: 048
     Dates: start: 20090902, end: 20091004
  12. MEROPENEM [Concomitant]
     Dosage: FORMULATION: INJ
     Route: 042
     Dates: start: 20090901, end: 20090913
  13. CIPROFLOXACIN [Concomitant]
     Dosage: FORMULATION: INJ
     Route: 042
     Dates: start: 20090902, end: 20091004
  14. TAZOBACTAM [Concomitant]
     Dosage: FORMULATION: INJ
     Route: 042
     Dates: start: 20090913, end: 20091004
  15. PIPERACILLIN [Concomitant]
     Dosage: FORMULATION: INJ
     Route: 042
     Dates: start: 20090913, end: 20091004
  16. METHYLPREDNISOLONE SODIUM SUCCINATE [Concomitant]
     Dosage: 1G/BODY,FORMULATION: INJ
     Route: 042
     Dates: start: 20090903, end: 20091004

REACTIONS (14)
  - ALANINE AMINOTRANSFERASE INCREASED [None]
  - ANAEMIA [None]
  - CYTOMEGALOVIRUS INFECTION [None]
  - DECREASED APPETITE [None]
  - DIARRHOEA [None]
  - EPSTEIN-BARR VIRUS INFECTION [None]
  - HISTIOCYTOSIS HAEMATOPHAGIC [None]
  - INFLUENZA [None]
  - INTERSTITIAL LUNG DISEASE [None]
  - NAUSEA [None]
  - PLATELET COUNT DECREASED [None]
  - PLEURAL EFFUSION [None]
  - PYREXIA [None]
  - WHITE BLOOD CELL COUNT DECREASED [None]
